FAERS Safety Report 22797428 (Version 2)
Quarter: 2023Q4

REPORT INFORMATION
  Report Type: Spontaneous
  Country: US (occurrence: US)
  Receive Date: 20230808
  Receipt Date: 20231016
  Transmission Date: 20240110
  Serious: No
  Sender: FDA-Public Use
  Company Number: US-BRISTOL-MYERS SQUIBB COMPANY-2023-111006

PATIENT
  Age: 63 Year
  Sex: Female

DRUGS (1)
  1. THALOMID [Suspect]
     Active Substance: THALIDOMIDE
     Indication: Lichen planus
     Route: 048

REACTIONS (8)
  - Somnolence [Unknown]
  - Dizziness [Unknown]
  - Brain fog [Unknown]
  - Product dose omission issue [Unknown]
  - Rash [Unknown]
  - Paraesthesia [Unknown]
  - Pain [Unknown]
  - Off label use [Unknown]
